FAERS Safety Report 5230367-6 (Version None)
Quarter: 2007Q1

REPORT INFORMATION
  Report Type: 
  Country: None (occurrence: None)
  Receive Date: 20070206
  Receipt Date: 20070125
  Transmission Date: 20070707
  Serious: Yes (Other)
  Sender: FDA-Public Use
  Company Number: US-PFIZER INC-2007007629

PATIENT
  Sex: Male
  Weight: 117 kg

DRUGS (3)
  1. CHANTIX [Suspect]
     Indication: SMOKING CESSATION THERAPY
     Dates: start: 20070112, end: 20070117
  2. BENADRYL [Suspect]
     Indication: MULTIPLE ALLERGIES
  3. ALBUTEROL [Concomitant]
     Route: 055

REACTIONS (4)
  - DRY SKIN [None]
  - EYE SWELLING [None]
  - LIP SWELLING [None]
  - PRURITUS [None]
